FAERS Safety Report 8135573-9 (Version None)
Quarter: 2012Q1

REPORT INFORMATION
  Report Type: 
  Country: None (occurrence: None)
  Receive Date: 20120214
  Receipt Date: 20120201
  Transmission Date: 20120608
  Serious: Yes (Other)
  Sender: FDA-Public Use
  Company Number: PHFR2011GB05822

PATIENT
  Sex: Female

DRUGS (22)
  1. AMISULPRIDE [Suspect]
     Dosage: 400 MG/DAY
  2. OMEGA-3 FATTY ACIDS [Concomitant]
     Dosage: 5 CAPSULES/DAY
  3. DROPERIDOL [Concomitant]
  4. RISPERIDONE [Concomitant]
  5. HYDROMOL [Concomitant]
     Dosage: 1 DF, QD
  6. LORAZEPAM [Concomitant]
     Dosage: 1 MG, TID
  7. AZATIOPRIN [Concomitant]
  8. THIORIDAZINE HCL [Concomitant]
  9. OLANZAPINE [Concomitant]
     Dosage: 30 MG, UNK
     Dates: start: 20101101, end: 20110303
  10. LANSOPRAZOLE [Concomitant]
     Dosage: 15 MG, QD
  11. OLANZAPINE [Concomitant]
     Dosage: 5 MG, BID
  12. LACTULOSE [Concomitant]
     Dosage: 10 ML, QD
  13. PROMETHAZINE [Concomitant]
     Dosage: 25 MG, MAX 50 MG/DAY
  14. SULPIRIDE [Concomitant]
  15. VALPROATE SODIUM [Concomitant]
     Dosage: 1.2 G AT 8 AM + 1.3 G AT 10 PM
  16. LEVOTHYROXINE SODIUM [Concomitant]
     Dosage: 100 UG, QD
  17. ACETAMINOPHEN AND CODEINE PHOSPHATE [Concomitant]
     Dosage: UNK DF, PRN
  18. QUETIAPINE [Concomitant]
  19. MELOXICAM [Concomitant]
     Dosage: 7.5 MG, BID
  20. ASPIRIN [Concomitant]
     Dosage: 150 MG, QD
  21. CLOZARIL [Suspect]
     Dosage: UNK UKN, UNK
  22. PREDNISOLONE [Concomitant]

REACTIONS (6)
  - NEUTROPENIA [None]
  - QUALITY OF LIFE DECREASED [None]
  - SYSTEMIC LUPUS ERYTHEMATOSUS [None]
  - HYPONATRAEMIA [None]
  - NEUTROPHIL COUNT ABNORMAL [None]
  - PSYCHOTIC DISORDER [None]
